FAERS Safety Report 4634439-6 (Version None)
Quarter: 2005Q2

REPORT INFORMATION
  Report Type: 
  Country: None (occurrence: None)
  Receive Date: 20050412
  Receipt Date: 20050328
  Transmission Date: 20051028
  Serious: Yes (Life-Threatening)
  Sender: FDA-Public Use
  Company Number: THYM-10448

PATIENT

DRUGS (1)
  1. THYMOGLOBULIN [Suspect]

REACTIONS (1)
  - RESPIRATORY FAILURE [None]
